FAERS Safety Report 12283703 (Version 1)
Quarter: 2016Q2

REPORT INFORMATION
  Report Type: Spontaneous
  Country: US (occurrence: US)
  Receive Date: 20160419
  Receipt Date: 20160419
  Transmission Date: 20160815
  Serious: No
  Sender: FDA-Public Use
  Company Number: US-BANPHARM-20164628

PATIENT
  Age: 66 Year
  Sex: Female
  Weight: 124.74 kg

DRUGS (3)
  1. LIPITOR [Concomitant]
     Active Substance: ATORVASTATIN CALCIUM
  2. BLOOD PRESSURE MEDICATION [Concomitant]
     Active Substance: UNSPECIFIED INGREDIENT
  3. ALEVE [Suspect]
     Active Substance: NAPROXEN SODIUM
     Route: 048

REACTIONS (1)
  - Therapeutic response unexpected [Unknown]
